FAERS Safety Report 5017114-8 (Version None)
Quarter: 2006Q2

REPORT INFORMATION
  Report Type: 
  Country: None (occurrence: None)
  Receive Date: 20060525
  Receipt Date: 20060501
  Transmission Date: 20061013
  Serious: Yes (Hospitalization)
  Sender: FDA-Public Use
  Company Number: US200605000192

PATIENT
  Age: 74 Year
  Sex: Female
  Weight: 49.9 kg

DRUGS (2)
  1. GEMZAR [Suspect]
     Indication: LUNG CANCER METASTATIC
     Dosage: 1430 MG OTHER INTRAVENOUS
     Route: 042
     Dates: start: 20060216
  2. CARBOPLATIN [Concomitant]

REACTIONS (6)
  - ASTHENIA [None]
  - ATRIAL TACHYCARDIA [None]
  - HAEMATOCRIT DECREASED [None]
  - HAEMOGLOBIN DECREASED [None]
  - SEPSIS [None]
  - VENTRICULAR TACHYCARDIA [None]
